FAERS Safety Report 17536706 (Version 1)
Quarter: 2020Q1

REPORT INFORMATION
  Report Type: Spontaneous
  Country: US (occurrence: US)
  Receive Date: 20200305
  Receipt Date: 20200305
  Transmission Date: 20200409
  Serious: Yes (Hospitalization)
  Sender: FDA-Public Use
  Company Number: None

PATIENT
  Age: 17 Year
  Sex: Female

DRUGS (11)
  1. XOLAIR [Suspect]
     Active Substance: OMALIZUMAB
     Indication: EMBOLISM
     Route: 058
     Dates: start: 20190927
  2. OMPERAZOLE [Concomitant]
     Active Substance: OMEPRAZOLE
  3. AMPET/DEXTR [Concomitant]
  4. BELSOMRA [Concomitant]
     Active Substance: SUVOREXANT
  5. PYRIDOSTIGMA [Concomitant]
  6. HYDROXYZ HCL [Concomitant]
     Active Substance: HYDROXYZINE HYDROCHLORIDE
  7. LORAZEPAM. [Concomitant]
     Active Substance: LORAZEPAM
  8. DIPHENHYDRAM [Concomitant]
  9. MONTELUKAST [Concomitant]
     Active Substance: MONTELUKAST SODIUM
  10. DICYCLOMINE [Concomitant]
     Active Substance: DICYCLOMINE HYDROCHLORIDE
  11. SYNTHROID [Concomitant]
     Active Substance: LEVOTHYROXINE SODIUM

REACTIONS (2)
  - Sepsis [None]
  - Weight decreased [None]

NARRATIVE: CASE EVENT DATE: 20200125
